FAERS Safety Report 7029742-9 (Version None)
Quarter: 2010Q4

REPORT INFORMATION
  Report Type: 
  Country: None (occurrence: None)
  Receive Date: 20101005
  Receipt Date: 20101005
  Transmission Date: 20110411
  Serious: Yes (Life-Threatening, Hospitalization, Disabling, Other)
  Sender: FDA-Public Use
  Company Number: None

PATIENT
  Age: 15 Year
  Sex: Male
  Weight: 56.2 kg

DRUGS (5)
  1. MERREM 2 GM ASTRAZENECA [Suspect]
     Indication: BRAIN ABSCESS
     Dosage: 2GM EVERY 8 HOURS IV
     Route: 042
     Dates: start: 20100831, end: 20100922
  2. MERREM 2 GM ASTRAZENECA [Suspect]
     Indication: SINUSITIS
     Dosage: 2GM EVERY 8 HOURS IV
     Route: 042
     Dates: start: 20100831, end: 20100922
  3. METRONIDAZOLE [Concomitant]
  4. KEPPRA [Concomitant]
  5. FLUTICASONE NASAL SPRAY [Concomitant]

REACTIONS (3)
  - EYE PAIN [None]
  - HEADACHE [None]
  - LEUKOPENIA [None]
